FAERS Safety Report 18308097 (Version 1)
Quarter: 2020Q3

REPORT INFORMATION
  Report Type: Spontaneous
  Country: US (occurrence: US)
  Receive Date: 20200924
  Receipt Date: 20200924
  Transmission Date: 20201103
  Serious: No
  Sender: FDA-Public Use
  Company Number: US-JNJFOC-20200923375

PATIENT
  Sex: Female

DRUGS (1)
  1. MENS ROGAINE EXTRA STRENGTH [Suspect]
     Active Substance: MINOXIDIL
     Indication: ALOPECIA
     Dosage: DOSE: 6 DROPS 2X A DAY?PRODUCT LAST ADMINISTERED ON 10?SEP?2020
     Route: 061

REACTIONS (2)
  - Off label use [Unknown]
  - Product use issue [Unknown]
